FAERS Safety Report 8785252 (Version 1)
Quarter: 2012Q4

REPORT INFORMATION
  Report Type: 
  Country: NL (occurrence: NL)
  Receive Date: 20120914
  Receipt Date: 20120914
  Transmission Date: 20130627
  Serious: Yes (Hospitalization, Other)
  Sender: FDA-Public Use
  Company Number: NL-UCBSA-065364

PATIENT
  Sex: Female

DRUGS (2)
  1. KEPPRA [Suspect]
  2. TEGRETOL [Concomitant]

REACTIONS (2)
  - Convulsion [Unknown]
  - Neutropenia [Not Recovered/Not Resolved]
